FAERS Safety Report 5917045-2 (Version None)
Quarter: 2008Q4

REPORT INFORMATION
  Report Type: 
  Country: None (occurrence: None)
  Receive Date: 20081009
  Receipt Date: 20081009
  Transmission Date: 20090506
  Serious: Yes (Other)
  Sender: FDA-Public Use
  Company Number: None

PATIENT
  Age: 61 Year
  Sex: Male
  Weight: 70.3075 kg

DRUGS (1)
  1. METOCLOPRAMIDE [Suspect]
     Indication: OESOPHAGEAL ACHALASIA
     Dosage: 1 TABLET  2 TIMES DAILY PO
     Route: 048
     Dates: start: 20070101, end: 20080812

REACTIONS (4)
  - APHASIA [None]
  - FATIGUE [None]
  - SLEEP PHASE RHYTHM DISTURBANCE [None]
  - TREMOR [None]
